FAERS Safety Report 22182130 (Version 1)
Quarter: 2023Q2

REPORT INFORMATION
  Report Type: Spontaneous
  Country: CN (occurrence: CN)
  Receive Date: 20230406
  Receipt Date: 20230406
  Transmission Date: 20230722
  Serious: Yes (Life-Threatening)
  Sender: FDA-Public Use
  Company Number: CN-BAYER-2023A044224

PATIENT
  Age: 25 Year
  Sex: Male
  Weight: 73 kg

DRUGS (2)
  1. ULTRAVIST [Suspect]
     Active Substance: IOPROMIDE
     Indication: Computerised tomogram
     Dosage: 80 ML, ONCE
     Route: 042
     Dates: start: 20230321, end: 20230321
  2. ULTRAVIST [Suspect]
     Active Substance: IOPROMIDE
     Indication: Haematuria

REACTIONS (10)
  - Anaphylactic shock [Recovered/Resolved]
  - Conjunctival oedema [Recovered/Resolved]
  - Vision blurred [Recovered/Resolved]
  - Urticaria [Recovered/Resolved]
  - Pruritus [Recovered/Resolved]
  - Depressed level of consciousness [Recovered/Resolved]
  - Blood pressure fluctuation [Recovered/Resolved]
  - Heart rate decreased [Recovered/Resolved]
  - Swelling face [Recovered/Resolved]
  - Nausea [Recovered/Resolved]

NARRATIVE: CASE EVENT DATE: 20230321
